FAERS Safety Report 9725373 (Version 2)
Quarter: 2016Q1

REPORT INFORMATION
  Report Type: Report from Study
  Country: US (occurrence: US)
  Receive Date: 20131203
  Receipt Date: 20160217
  Transmission Date: 20160526
  Serious: Yes (Other)
  Sender: FDA-Public Use
  Company Number: US-ROCHE-1308270

PATIENT
  Age: 51 Year
  Sex: Female

DRUGS (6)
  1. TELAPREVIR [Suspect]
     Active Substance: TELAPREVIR
     Indication: HEPATITIS C
     Route: 048
     Dates: start: 20130825, end: 20131120
  2. PEGASYS [Suspect]
     Active Substance: PEGINTERFERON ALFA-2A
     Indication: HEPATITIS C
     Dosage: 1 WEEKLY
     Route: 058
     Dates: start: 20130825, end: 20131120
  3. RIBAVIRIN. [Suspect]
     Active Substance: RIBAVIRIN
     Indication: HEPATITIS C
     Dosage: 1000MG 2 IN MORNING 3 IN AFTERNOON
     Route: 048
     Dates: start: 20130825, end: 20131120
  4. XANAX [Concomitant]
     Active Substance: ALPRAZOLAM
     Indication: ANXIETY
  5. BENADRYL [Concomitant]
     Active Substance: DIPHENHYDRAMINE HYDROCHLORIDE
     Dosage: AS NEEDED
     Route: 065
  6. PROZAC [Concomitant]
     Active Substance: FLUOXETINE HYDROCHLORIDE
     Dosage: UPPED THE DOSE
     Route: 065

REACTIONS (9)
  - Haemoglobin abnormal [Unknown]
  - Rash [Recovered/Resolved]
  - Urinary tract infection [Unknown]
  - Swelling face [Recovering/Resolving]
  - Urticaria [Recovered/Resolved]
  - Depression [Unknown]
  - Lip swelling [Recovering/Resolving]
  - Swollen tongue [Recovering/Resolving]
  - Furuncle [Recovering/Resolving]

NARRATIVE: CASE EVENT DATE: 20131028
